FAERS Safety Report 4290316-4 (Version None)
Quarter: 2004Q1

REPORT INFORMATION
  Report Type: 
  Country: None (occurrence: None)
  Receive Date: 20040126
  Receipt Date: 20030818
  Transmission Date: 20041129
  Serious: No
  Sender: FDA-Public Use
  Company Number: USA0126731

PATIENT
  Age: 71 Year
  Sex: Female

DRUGS (2)
  1. FORTEO [Suspect]
     Dosage: 20 UG
     Dates: start: 20021201
  2. LORTAB [Concomitant]

REACTIONS (4)
  - EXTRAVASATION [None]
  - MUSCLE CRAMP [None]
  - NAUSEA [None]
  - NECK PAIN [None]
